FAERS Safety Report 16988871 (Version 1)
Quarter: 2019Q4

REPORT INFORMATION
  Report Type: Spontaneous
  Country: US (occurrence: US)
  Receive Date: 20190919
  Receipt Date: 20190919
  Transmission Date: 20200122
  Serious: Yes (Hospitalization)
  Sender: FDA-Public Use
  Company Number: None

PATIENT
  Sex: Male

DRUGS (8)
  1. ALBUTEROL. [Concomitant]
     Active Substance: ALBUTEROL
  2. PREDNISONE. [Concomitant]
     Active Substance: PREDNISONE
  3. VENTOLIN [Concomitant]
     Active Substance: ALBUTEROL SULFATE
  4. PREDNISOLONE. [Concomitant]
     Active Substance: PREDNISOLONE
  5. EPINEPHRINE. [Concomitant]
     Active Substance: EPINEPHRINE
  6. LEVALBUTEROL. [Concomitant]
     Active Substance: LEVALBUTEROL
  7. OMNITROPE [Suspect]
     Active Substance: SOMATROPIN
     Indication: DRUG LEVEL THERAPEUTIC
     Dosage: ?          OTHER DOSE:1.7MG;OTHER FREQUENCY:6 DAYS WK;?
     Route: 058
     Dates: start: 20160129
  8. AZITHR [Concomitant]

REACTIONS (2)
  - Therapy cessation [None]
  - Asthma [None]

NARRATIVE: CASE EVENT DATE: 2019
